FAERS Safety Report 8211243-3 (Version None)
Quarter: 2012Q1

REPORT INFORMATION
  Report Type: 
  Country: None (occurrence: None)
  Receive Date: 20120315
  Receipt Date: 20120301
  Transmission Date: 20120608
  Serious: No
  Sender: FDA-Public Use
  Company Number: US-PFIZER INC-2012056680

PATIENT
  Sex: Female
  Weight: 109 kg

DRUGS (10)
  1. ATORVASTATIN CALCIUM [Suspect]
     Dosage: 40 MG, DAILY
     Dates: start: 20120104, end: 20120101
  2. ISOSORBIDE MONONITRATE [Concomitant]
     Indication: HYPERTENSION
     Dosage: 30 MG, 1X/DAY
     Dates: start: 20110501
  3. LEVOTHYROXINE [Concomitant]
     Indication: THYROID HORMONE REPLACEMENT THERAPY
     Dosage: 237 UG, DAILY
     Dates: start: 20030101
  4. IBUPROFEN [Concomitant]
     Indication: PAIN
     Dosage: UNK
  5. LISINOPRIL [Concomitant]
     Indication: HYPERTENSION
     Dosage: 20 MG, 2X/DAY
     Dates: start: 20110501
  6. LOPRESSOR [Concomitant]
     Indication: HYPERTENSION
     Dosage: 50 MG, 2X/DAY
     Dates: start: 20110501
  7. HYDRALAZINE [Concomitant]
     Indication: HYPERTENSION
     Dosage: 25 MG, 2X/DAY
     Dates: start: 20110501
  8. DEMADEX [Concomitant]
     Indication: HYPERTENSION
     Dosage: 40 MG, 2X/DAY
  9. MEVACOR [Suspect]
     Indication: BLOOD CHOLESTEROL INCREASED
     Dosage: UNK
  10. CLONIDINE [Concomitant]
     Indication: HYPERTENSION
     Dosage: 0.2 MG, 3X/DAY

REACTIONS (1)
  - PAIN IN EXTREMITY [None]
